FAERS Safety Report 16344834 (Version 1)
Quarter: 2019Q2

REPORT INFORMATION
  Report Type: Report from Study
  Country: RU (occurrence: RU)
  Receive Date: 20190522
  Receipt Date: 20190522
  Transmission Date: 20190711
  Serious: Yes (Other)
  Sender: FDA-Public Use
  Company Number: RU-ASTRAZENECA-2019SE74270

PATIENT
  Age: 70 Year
  Sex: Male

DRUGS (7)
  1. ACECARDOL [Concomitant]
     Active Substance: ASPIRIN
  2. BRILINTA [Suspect]
     Active Substance: TICAGRELOR
     Indication: MYOCARDIAL INFARCTION
     Route: 048
     Dates: start: 201806
  3. GLUCOPHAGE [Concomitant]
     Active Substance: METFORMIN HYDROCHLORIDE
  4. OMEZ [Concomitant]
     Active Substance: OMEPRAZOLE
  5. LOSARTAN. [Concomitant]
     Active Substance: LOSARTAN
  6. CARDIKET [Concomitant]
     Active Substance: ISOSORBIDE DINITRATE
  7. MERTENIL [Concomitant]
     Active Substance: ROSUVASTATIN CALCIUM

REACTIONS (1)
  - Renal disorder [Not Recovered/Not Resolved]

NARRATIVE: CASE EVENT DATE: 201904
